FAERS Safety Report 5262046-3 (Version None)
Quarter: 2007Q1

REPORT INFORMATION
  Report Type: 
  Country: None (occurrence: None)
  Receive Date: 20061208
  Receipt Date: 20060725
  Transmission Date: 20070707
  Serious: Yes (Other)
  Sender: FDA-Public Use
  Company Number: USA-2006-0024721

PATIENT
  Age: 30 Year
  Sex: Female
  Weight: 50.3 kg

DRUGS (1)
  1. OXYCONTIN [Suspect]
     Indication: PANCREATIC CARCINOMA
     Dosage: 80 MG/4 TABLETS TWICE A DAY
     Dates: start: 20040617, end: 20060629

REACTIONS (2)
  - DRUG ABUSER [None]
  - LEGAL PROBLEM [None]
